FAERS Safety Report 7095787 (Version 2)
Quarter: 2014Q3

REPORT INFORMATION
  Report Type: Spontaneous
  Country: US (occurrence: None)
  Receive Date: 20090817
  Receipt Date: 20140922
  Transmission Date: 20150326
  Serious: Yes (Other)
  Sender: FDA-Public Use
  Company Number: 2009S1006590

PATIENT
  Age: 59 Year
  Sex: Female
  Weight: 85 kg

DRUGS (16)
  1. FUROSEMIDE. [Concomitant]
     Active Substance: FUROSEMIDE
  2. ASPIRIN. [Concomitant]
     Active Substance: ASPIRIN
  3. PLAVIX [Concomitant]
     Active Substance: CLOPIDOGREL BISULFATE
  4. XANAX [Concomitant]
     Active Substance: ALPRAZOLAM
  5. ZOCOR [Concomitant]
     Active Substance: SIMVASTATIN
  6. PHOSPHO-SODA [Suspect]
     Active Substance: SODIUM PHOSPHATE, DIBASIC\SODIUM PHOSPHATE, MONOBASIC
     Indication: COLONOSCOPY
     Dosage: ; PO
     Route: 048
     Dates: start: 20070619, end: 20070619
  7. FOSINOPRIL [Concomitant]
     Active Substance: FOSINOPRIL
  8. MOBIC [Concomitant]
     Active Substance: MELOXICAM
  9. VYTORIN [Concomitant]
     Active Substance: EZETIMIBE\SIMVASTATIN
  10. LANTUS [Concomitant]
     Active Substance: INSULIN GLARGINE
  11. GLUCOVANCE [Concomitant]
     Active Substance: GLYBURIDE\METFORMIN HYDROCHLORIDE
  12. DEXAMETHASONE. [Concomitant]
     Active Substance: DEXAMETHASONE
  13. TRIAMTERENE. [Concomitant]
     Active Substance: TRIAMTERENE
  14. HYDROCHLOROTHIAZIDE. [Concomitant]
     Active Substance: HYDROCHLOROTHIAZIDE
  15. PREVACID [Concomitant]
     Active Substance: LANSOPRAZOLE
  16. TOPROL XL [Concomitant]
     Active Substance: METOPROLOL SUCCINATE

REACTIONS (5)
  - Haematotoxicity [None]
  - Diabetic nephropathy [None]
  - Renal failure [None]
  - Dehydration [None]
  - Nephrosclerosis [None]

NARRATIVE: CASE EVENT DATE: 200712
